FAERS Safety Report 17347018 (Version 1)
Quarter: 2020Q1

REPORT INFORMATION
  Report Type: Report from Study
  Country: US (occurrence: US)
  Receive Date: 20200129
  Receipt Date: 20200129
  Transmission Date: 20200409
  Serious: No
  Sender: FDA-Public Use
  Company Number: US-EXELIXIS-CABO-19022304

PATIENT
  Sex: Female
  Weight: 68.03 kg

DRUGS (3)
  1. PHENAZOPYRIDINE HCL [Concomitant]
     Active Substance: PHENAZOPYRIDINE HYDROCHLORIDE
  2. CABOMETYX [Suspect]
     Active Substance: CABOZANTINIB S-MALATE
     Indication: RENAL CANCER
     Dosage: 40 MG, QD (1 TABLET )
     Route: 048
     Dates: start: 201808
  3. AMPICILLIN TRIHYDRATE. [Concomitant]
     Active Substance: AMPICILLIN TRIHYDRATE

REACTIONS (3)
  - Oropharyngeal pain [Unknown]
  - Rhinorrhoea [Unknown]
  - Headache [Unknown]
